FAERS Safety Report 13613304 (Version 3)
Quarter: 2017Q4

REPORT INFORMATION
  Report Type: Spontaneous
  Country: US (occurrence: US)
  Receive Date: 20170605
  Receipt Date: 20171106
  Transmission Date: 20180320
  Serious: Yes (Hospitalization)
  Sender: FDA-Public Use
  Company Number: US-VIFOR (INTERNATIONAL) INC.-VIT-2017-06242

PATIENT
  Sex: Female
  Weight: 81.72 kg

DRUGS (13)
  1. VELTASSA [Suspect]
     Active Substance: PATIROMER
     Indication: HYPERKALAEMIA
     Route: 048
     Dates: start: 20160723
  2. PRILOSEC [Concomitant]
     Active Substance: OMEPRAZOLE MAGNESIUM
  3. CARVEDILOL. [Concomitant]
     Active Substance: CARVEDILOL
  4. ATIVAN [Concomitant]
     Active Substance: LORAZEPAM
  5. IMIPRAMINE HYDROCHLORIDE. [Concomitant]
     Active Substance: IMIPRAMINE HYDROCHLORIDE
  6. WARFARIN SODIUM. [Concomitant]
     Active Substance: WARFARIN SODIUM
  7. TEMAZEPAM. [Concomitant]
     Active Substance: TEMAZEPAM
  8. SIMVASTATIN. [Concomitant]
     Active Substance: SIMVASTATIN
  9. LIDOCAINE HYDROCHLORIDE. [Concomitant]
     Active Substance: LIDOCAINE HYDROCHLORIDE
  10. TRAMADOL HCL ER (BIPHASIC) [Concomitant]
  11. GABAPENTIN. [Concomitant]
     Active Substance: GABAPENTIN
  12. ZANAFLEX [Concomitant]
     Active Substance: TIZANIDINE HYDROCHLORIDE
  13. FENTANYL. [Concomitant]
     Active Substance: FENTANYL

REACTIONS (3)
  - Colitis [Not Recovered/Not Resolved]
  - Blood potassium increased [Recovered/Resolved]
  - Tremor [Recovered/Resolved]

NARRATIVE: CASE EVENT DATE: 2017
